FAERS Safety Report 8824104 (Version 2)
Quarter: 2012Q4

REPORT INFORMATION
  Report Type: 
  Country: GB (occurrence: GB)
  Receive Date: 20121004
  Receipt Date: 20121009
  Transmission Date: 20130627
  Serious: Yes (Other)
  Sender: FDA-Public Use
  Company Number: GB-ACCORD-014798

PATIENT
  Sex: Male
  Weight: 107.95 kg

DRUGS (2)
  1. CLOPIDOGREL [Suspect]
     Indication: OVERWEIGHT
     Dosage: 75 mg, UNK
     Route: 048
     Dates: start: 20120610, end: 20120912
  2. ZOCOR [Suspect]
     Indication: OVERWEIGHT
     Route: 048
     Dates: start: 20120610, end: 20120912

REACTIONS (3)
  - Neuropathy peripheral [Unknown]
  - Erectile dysfunction [Unknown]
  - Tinnitus [Unknown]
